FAERS Safety Report 7992629-9 (Version None)
Quarter: 2011Q4

REPORT INFORMATION
  Report Type: 
  Country: None (occurrence: None)
  Receive Date: 20111219
  Receipt Date: 20101209
  Transmission Date: 20120403
  Serious: No
  Sender: FDA-Public Use
  Company Number: US-ASTRAZENECA-2010SE52718

PATIENT
  Age: 77 Year
  Sex: Female
  Weight: 60.3 kg

DRUGS (1)
  1. CRESTOR [Suspect]
     Route: 048

REACTIONS (5)
  - PAIN IN EXTREMITY [None]
  - WALKING AID USER [None]
  - AMNESIA [None]
  - MYALGIA [None]
  - MUSCLE SPASMS [None]
